FAERS Safety Report 17718892 (Version 1)
Quarter: 2020Q2

REPORT INFORMATION
  Report Type: Spontaneous
  Country: DE (occurrence: DE)
  Receive Date: 20200428
  Receipt Date: 20200428
  Transmission Date: 20200714
  Serious: Yes (Death, Other)
  Sender: FDA-Public Use
  Company Number: DE-ELI_LILLY_AND_COMPANY-DE202004009170

PATIENT

DRUGS (3)
  1. HALOPERIDOL. [Suspect]
     Active Substance: HALOPERIDOL
     Indication: ANTIDEPRESSANT THERAPY
     Dosage: 2 MG, DAILY
     Route: 065
  2. PROTHIPENDYL [Suspect]
     Active Substance: PROTHIPENDYL
     Indication: ANTIDEPRESSANT THERAPY
     Dosage: 120 MG, DAILY
     Route: 065
  3. OLANZAPINE. [Suspect]
     Active Substance: OLANZAPINE
     Indication: ANTIDEPRESSANT THERAPY
     Dosage: 12.5 MG, DAILY
     Route: 065

REACTIONS (3)
  - Pneumonia [Fatal]
  - Parkinsonism [Fatal]
  - Immobile [Fatal]
